FAERS Safety Report 5373899-2 (Version None)
Quarter: 2007Q2

REPORT INFORMATION
  Report Type: 
  Country: None (occurrence: None)
  Receive Date: 20070615
  Receipt Date: 20060918
  Transmission Date: 20071010
  Serious: Yes (Other)
  Sender: FDA-Public Use
  Company Number: 200611608US

PATIENT
  Age: 52 Year
  Sex: Female

DRUGS (15)
  1. LANTUS [Suspect]
     Indication: DIABETES MELLITUS INSULIN-DEPENDENT
     Dates: start: 20051013
  2. OPICLIK [Suspect]
     Dates: start: 20051013
  3. HUMALOG [Concomitant]
  4. ALTACE [Concomitant]
  5. FLOVENT [Concomitant]
  6. LASIX [Concomitant]
  7. METOCLOPRAMIDE [Concomitant]
  8. CRESTOR [Concomitant]
  9. GLYCERYL TRINITRATE (NITRO DUR) [Concomitant]
  10. OLOPATADINE HYDROCHLORIDE (PATANOL) [Concomitant]
  11. TOPROL-XL [Concomitant]
  12. ZETIA [Concomitant]
  13. PLAVIX [Concomitant]
  14. SALBUTAMOL [Concomitant]
  15. SYNTHROID [Concomitant]

REACTIONS (1)
  - HYPOGLYCAEMIA [None]
